FAERS Safety Report 9324531 (Version 5)
Quarter: 2013Q3

REPORT INFORMATION
  Report Type: Report from Study
  Country: DE (occurrence: DE)
  Receive Date: 20130603
  Receipt Date: 20130725
  Transmission Date: 20140515
  Serious: Yes (Hospitalization)
  Sender: FDA-Public Use
  Company Number: DE-AMGEN-DEUCT2013038925

PATIENT
  Age: 69 Year
  Sex: Female

DRUGS (5)
  1. PANITUMUMAB [Suspect]
     Indication: CHOLANGIOCARCINOMA
     Dosage: 9 MG/KG, UNK
     Route: 042
     Dates: start: 20130225
  2. GEMCITABINE [Concomitant]
     Indication: CHOLANGIOCARCINOMA
     Dosage: 1000 MG/M2, UNK
     Route: 042
     Dates: start: 20130225
  3. CISPLATIN [Concomitant]
     Indication: CHOLANGIOCARCINOMA
     Dosage: 25 MG/M2, UNK
     Route: 042
     Dates: start: 20130225
  4. ISOTRETINOIN [Concomitant]
     Dosage: 10 MG, UNK
     Dates: start: 20130522
  5. METRONIDAZOLE [Concomitant]
     Dosage: UNK
     Dates: start: 20130522

REACTIONS (1)
  - Dermatitis exfoliative [Recovered/Resolved]
